FAERS Safety Report 20015773 (Version 1)
Quarter: 2021Q4

REPORT INFORMATION
  Report Type: Spontaneous
  Country: US (occurrence: None)
  Receive Date: 20211101
  Receipt Date: 20211101
  Transmission Date: 20220303
  Serious: No
  Sender: FDA-Public Use
  Company Number: None

PATIENT
  Sex: Female

DRUGS (1)
  1. PLEGRIDY [Suspect]
     Active Substance: PEGINTERFERON BETA-1A
     Indication: Multiple sclerosis
     Dosage: OTHER STRENGTH : 125MCG/.5;?OTHER QUANTITY : 125MCG;?OTHER FREQUENCY : EVERY 14 DAYS;?
     Route: 058
     Dates: start: 202103, end: 202109

REACTIONS (2)
  - Hypersensitivity [None]
  - Therapy cessation [None]
